FAERS Safety Report 4461291-4 (Version None)
Quarter: 2004Q3

REPORT INFORMATION
  Report Type: 
  Country: None (occurrence: None)
  Receive Date: 20040928
  Receipt Date: 20040914
  Transmission Date: 20050211
  Serious: Yes (Other)
  Sender: FDA-Public Use
  Company Number: JPKYO-S-20040031

PATIENT
  Age: 70 Year
  Sex: Female

DRUGS (4)
  1. NAVELBINE [Suspect]
     Indication: LUNG NEOPLASM MALIGNANT
     Dosage: 28MG PER DAY
     Route: 042
     Dates: start: 20040107
  2. NAVELBINE [Suspect]
     Dosage: 36MG PER DAY
     Route: 042
     Dates: start: 20031119, end: 20031126
  3. CISPLATIN [Suspect]
     Indication: LUNG NEOPLASM MALIGNANT
     Dosage: 28MG PER DAY
     Route: 042
     Dates: start: 20040107
  4. RADIOTHERAPY [Concomitant]
     Indication: LUNG NEOPLASM MALIGNANT
     Dates: start: 20031119

REACTIONS (5)
  - ERYTHROPENIA [None]
  - FEBRILE NEUTROPENIA [None]
  - HAEMOGLOBIN DECREASED [None]
  - PYREXIA [None]
  - WHITE BLOOD CELL COUNT DECREASED [None]
